FAERS Safety Report 25645296 (Version 3)
Quarter: 2025Q3

REPORT INFORMATION
  Report Type: Report from Study
  Country: JP (occurrence: JP)
  Receive Date: 20250805
  Receipt Date: 20250926
  Transmission Date: 20251020
  Serious: Yes (Hospitalization, Other)
  Sender: ABBVIE
  Company Number: JP-TAKEDA-2025TJP007808

PATIENT
  Age: 43 Year
  Weight: 79 kg

DRUGS (3)
  1. LEUPROLIDE ACETATE [Suspect]
     Active Substance: LEUPROLIDE ACETATE
     Indication: Bulbospinal muscular atrophy congenital
     Dosage: 11.25 MILLIGRAM, Q3MONTHS
     Route: 065
     Dates: start: 20171212
  2. METHYLCOBALAMIN [Concomitant]
     Active Substance: METHYLCOBALAMIN
     Indication: Bulbospinal muscular atrophy congenital
     Route: 065
  3. TOCOPHERYL NICOTINATE, D-.ALPHA. [Concomitant]
     Active Substance: TOCOPHERYL NICOTINATE, D-.ALPHA.
     Indication: Dyslipidaemia
     Route: 065

REACTIONS (3)
  - Retinal detachment [Unknown]
  - Foot fracture [Recovered/Resolved]
  - Fracture [Unknown]

NARRATIVE: CASE EVENT DATE: 20201119
